FAERS Safety Report 7055019-1 (Version None)
Quarter: 2010Q4

REPORT INFORMATION
  Report Type: 
  Country: None (occurrence: None)
  Receive Date: 20101021
  Receipt Date: 20100930
  Transmission Date: 20110411
  Serious: Yes (Hospitalization)
  Sender: FDA-Public Use
  Company Number: US-BAYER-201036821NA

PATIENT
  Age: 38 Year
  Sex: Female
  Weight: 91 kg

DRUGS (5)
  1. YAZ [Suspect]
     Indication: CONTRACEPTION
     Dates: start: 20071019
  2. YASMIN [Suspect]
     Indication: CONTRACEPTION
     Dates: start: 20061024
  3. SYNTHROID [Concomitant]
     Indication: HYPOTHYROIDISM
  4. ASMANEX TWISTHALER [Concomitant]
     Indication: ASTHMA
     Dates: start: 20080623
  5. SEASONALE [Concomitant]

REACTIONS (7)
  - ABDOMINAL PAIN [None]
  - ABDOMINAL PAIN UPPER [None]
  - BILIARY COLIC [None]
  - CHOLELITHIASIS [None]
  - ERUCTATION [None]
  - NAUSEA [None]
  - PAIN [None]
